FAERS Safety Report 4476744-2 (Version None)
Quarter: 2004Q4

REPORT INFORMATION
  Report Type: 
  Country: None (occurrence: None)
  Receive Date: 20041015
  Receipt Date: 20041015
  Transmission Date: 20050328
  Serious: Yes (Life-Threatening, Hospitalization)
  Sender: FDA-Public Use
  Company Number: None

PATIENT
  Age: 58 Year
  Sex: Male
  Weight: 69.4003 kg

DRUGS (4)
  1. AVASTIN [Suspect]
     Indication: COLORECTAL CANCER METASTATIC
     Dosage: 360  Q2WK   INTRAVENOU
     Route: 042
     Dates: start: 20040707, end: 20040901
  2. IRINOTECAN [Concomitant]
  3. 5FU [Concomitant]
  4. LEUCOVORIN [Concomitant]

REACTIONS (4)
  - ANASTOMOTIC COMPLICATION [None]
  - ARTHRALGIA [None]
  - PERIRECTAL ABSCESS [None]
  - POST PROCEDURAL COMPLICATION [None]
